FAERS Safety Report 7468293-4 (Version None)
Quarter: 2011Q2

REPORT INFORMATION
  Report Type: 
  Country: None (occurrence: None)
  Receive Date: 20110509
  Receipt Date: 20110505
  Transmission Date: 20111010
  Serious: Yes (Life-Threatening, Hospitalization)
  Sender: FDA-Public Use
  Company Number: TR-ABBOTT-11P-161-0723888-00

PATIENT
  Age: 77 Year
  Sex: Male
  Weight: 95 kg

DRUGS (1)
  1. TARKA [Suspect]
     Indication: HYPERTENSION
     Dosage: 180/2 MG X 1
     Route: 048
     Dates: end: 20110503

REACTIONS (2)
  - PNEUMONIA [None]
  - ATRIOVENTRICULAR BLOCK [None]
